FAERS Safety Report 26132998 (Version 1)
Quarter: 2025Q4

REPORT INFORMATION
  Report Type: Spontaneous
  Country: US (occurrence: US)
  Receive Date: 20251209
  Receipt Date: 20251209
  Transmission Date: 20260117
  Serious: Yes (Other)
  Sender: NOVARTIS
  Company Number: US-002147023-NVSC2025US188175

PATIENT
  Age: 71 Year
  Sex: Male

DRUGS (1)
  1. LEQVIO [Suspect]
     Active Substance: INCLISIRAN SODIUM
     Indication: Low density lipoprotein increased
     Dosage: 284 MG (INITIAL DOSE, 2ND DOSE AT MONTH 3 THE EVERY 6 MONTHS)
     Route: 058
     Dates: start: 20250814, end: 20251114

REACTIONS (1)
  - Blepharitis [Recovering/Resolving]

NARRATIVE: CASE EVENT DATE: 20251130
